FAERS Safety Report 7877213-X (Version None)
Quarter: 2011Q4

REPORT INFORMATION
  Report Type: 
  Country: None (occurrence: None)
  Receive Date: 20111031
  Receipt Date: 20111019
  Transmission Date: 20120403
  Serious: Yes (Other)
  Sender: FDA-Public Use
  Company Number: JP-ASTRAZENECA-2011SE65055

PATIENT
  Age: 27747 Day
  Sex: Male

DRUGS (2)
  1. MEROPENEM [Suspect]
     Indication: PNEUMONIA
     Route: 042
     Dates: start: 20110927, end: 20110930
  2. HEPARIN NA LOCK [Concomitant]
     Dosage: 300 UNITS
     Route: 042
     Dates: start: 20110927, end: 20110929

REACTIONS (1)
  - PLATELET COUNT DECREASED [None]
